FAERS Safety Report 6051916-4 (Version None)
Quarter: 2009Q1

REPORT INFORMATION
  Report Type: 
  Country: None (occurrence: None)
  Receive Date: 20090126
  Receipt Date: 20090122
  Transmission Date: 20090719
  Serious: No
  Sender: FDA-Public Use
  Company Number: FR-EISAI MEDICAL RESEARCH-E2020-03828-SPO-FR

PATIENT
  Age: 95 Year
  Sex: Female
  Weight: 46 kg

DRUGS (5)
  1. ARICEPT [Suspect]
     Indication: DEMENTIA ALZHEIMER'S TYPE
     Route: 048
     Dates: start: 20080516, end: 20081122
  2. IDEOS [Concomitant]
     Indication: HYPOVITAMINOSIS
     Dosage: 2 UNITS
     Route: 048
     Dates: start: 20081003
  3. EFFERALGAN [Concomitant]
     Indication: BACK PAIN
     Route: 048
     Dates: start: 20081125
  4. TIAPRIDAL [Concomitant]
     Indication: ABNORMAL BEHAVIOUR
     Route: 048
     Dates: start: 20081224
  5. VITAMIN B-12 [Concomitant]
     Indication: DRUG USE FOR UNKNOWN INDICATION
     Dosage: 1 AMPULE
     Route: 048
     Dates: start: 20081224, end: 20081224

REACTIONS (1)
  - CHOREA [None]
